FAERS Safety Report 4816775-3 (Version None)
Quarter: 2005Q4

REPORT INFORMATION
  Report Type: 
  Country: None (occurrence: None)
  Receive Date: 20051031
  Receipt Date: 20051031
  Transmission Date: 20060501
  Serious: Yes (Death)
  Sender: FDA-Public Use
  Company Number: None

PATIENT
  Age: 70 Year
  Sex: Male
  Weight: 74 kg

DRUGS (5)
  1. VALPROIC ACID [Suspect]
     Indication: PROSTATE CANCER
     Dosage: 10MG/KG/DAY (15CC)
     Dates: start: 20050927, end: 20051011
  2. ZOMETA [Concomitant]
  3. DURAGESIC-100 [Concomitant]
  4. LUNESTA [Concomitant]
  5. OXYCODONE [Concomitant]

REACTIONS (4)
  - HEART RATE INCREASED [None]
  - LUNG INFILTRATION [None]
  - OXYGEN SATURATION DECREASED [None]
  - RESPIRATORY FAILURE [None]
